FAERS Safety Report 8456325-6 (Version None)
Quarter: 2012Q2

REPORT INFORMATION
  Report Type: 
  Country: None (occurrence: None)
  Receive Date: 20120621
  Receipt Date: 20120614
  Transmission Date: 20120825
  Serious: Yes (Death, Hospitalization)
  Sender: FDA-Public Use
  Company Number: US-GLAXOSMITHKLINE-A0867776A

PATIENT
  Age: 66 Year
  Sex: Female

DRUGS (1)
  1. AVANDIA [Suspect]
     Indication: DIABETES MELLITUS
     Dosage: 4MG PER DAY
     Route: 048
     Dates: start: 20061228, end: 20070125

REACTIONS (5)
  - CARDIAC FAILURE CONGESTIVE [None]
  - METAMORPHOPSIA [None]
  - PULMONARY HYPERTENSION [None]
  - HEART VALVE REPLACEMENT [None]
  - ARTHRALGIA [None]
